FAERS Safety Report 12755894 (Version 2)
Quarter: 2016Q4

REPORT INFORMATION
  Report Type: Spontaneous
  Country: US (occurrence: US)
  Receive Date: 20160916
  Receipt Date: 20161007
  Transmission Date: 20170207
  Serious: No
  Sender: FDA-Public Use
  Company Number: GXBR2016US002392

PATIENT
  Sex: Female
  Weight: 54.42 kg

DRUGS (9)
  1. ARPYROX [Concomitant]
     Indication: MULTIPLE SCLEROSIS
     Dosage: 1 DF, BID
  2. DETROL LA [Concomitant]
     Active Substance: TOLTERODINE TARTRATE
     Indication: MULTIPLE SCLEROSIS
     Dosage: 1 DF, QD
  3. INDERAL [Concomitant]
     Active Substance: PROPRANOLOL HYDROCHLORIDE
     Indication: HYPERTENSION
     Dosage: 1 DF, QD
     Dates: start: 1998
  4. ZANAFLEX [Concomitant]
     Active Substance: TIZANIDINE HYDROCHLORIDE
     Indication: MULTIPLE SCLEROSIS
     Dosage: 1.5 DF, QD
  5. BACLOFEN. [Concomitant]
     Active Substance: BACLOFEN
     Indication: MULTIPLE SCLEROSIS
     Dosage: 3 DF, QD
  6. GLATOPA [Suspect]
     Active Substance: GLATIRAMER ACETATE
     Indication: MULTIPLE SCLEROSIS
     Dosage: 20 MG/ML, QD
     Route: 065
  7. PRINIVIL [Concomitant]
     Active Substance: LISINOPRIL
     Indication: MULTIPLE SCLEROSIS
     Dosage: 1 DF, QD
  8. ELAVIL [Concomitant]
     Active Substance: AMITRIPTYLINE HYDROCHLORIDE
     Indication: MULTIPLE SCLEROSIS
     Dosage: 2 DF, QD
  9. NASACORT [Concomitant]
     Active Substance: TRIAMCINOLONE ACETONIDE
     Indication: NASAL DISORDER
     Dosage: 1 DF, QD

REACTIONS (1)
  - Feeling abnormal [Recovered/Resolved]
